FAERS Safety Report 8508674-0 (Version None)
Quarter: 2012Q3

REPORT INFORMATION
  Report Type: 
  Country: None (occurrence: None)
  Receive Date: 20120713
  Receipt Date: 20120710
  Transmission Date: 20120928
  Serious: Yes (Other)
  Sender: FDA-Public Use
  Company Number: ES-PFIZER INC-2012164998

PATIENT
  Age: 33 Year
  Sex: Female

DRUGS (2)
  1. TAZOBACTAM [Suspect]
     Dosage: UNK
     Route: 042
     Dates: start: 20120301, end: 20120301
  2. MEROPENEM [Suspect]
     Dosage: UNK
     Route: 042
     Dates: start: 20120301, end: 20120301

REACTIONS (1)
  - DRUG RASH WITH EOSINOPHILIA AND SYSTEMIC SYMPTOMS [None]
